FAERS Safety Report 21129301 (Version 2)
Quarter: 2023Q1

REPORT INFORMATION
  Report Type: Spontaneous
  Country: JP (occurrence: JP)
  Receive Date: 20220725
  Receipt Date: 20230124
  Transmission Date: 20230418
  Serious: Yes (Hospitalization, Other)
  Sender: FDA-Public Use
  Company Number: JP-NOVARTISPH-NVSJ2022JP091910

PATIENT
  Age: 94 Year
  Sex: Female

DRUGS (8)
  1. ENTRESTO [Suspect]
     Active Substance: SACUBITRIL\VALSARTAN
     Indication: Cardiac failure chronic
     Dosage: 100 MG
     Route: 048
     Dates: start: 20220426, end: 20220603
  2. SPIRONOLACTONE [Suspect]
     Active Substance: SPIRONOLACTONE
     Indication: Cardiac failure
     Dosage: 25 MG
     Route: 048
     Dates: start: 20220512, end: 20220531
  3. POTASSIUM GLUCONATE [Suspect]
     Active Substance: POTASSIUM GLUCONATE
     Indication: Hypokalaemia
     Dosage: 2 G
     Route: 048
     Dates: start: 20220504, end: 20220527
  4. LASIX [Concomitant]
     Active Substance: FUROSEMIDE
     Indication: Product used for unknown indication
     Dosage: 20 MG
     Route: 048
  5. ATORVASTATIN [Concomitant]
     Active Substance: ATORVASTATIN
     Indication: Product used for unknown indication
     Dosage: 10 MG
     Route: 048
  6. LOXOPROFEN SODIUM [Concomitant]
     Active Substance: LOXOPROFEN SODIUM
     Indication: Product used for unknown indication
     Dosage: 50 MG
     Route: 065
     Dates: end: 20220426
  7. SAMSCA [Concomitant]
     Active Substance: TOLVAPTAN
     Indication: Product used for unknown indication
     Dosage: 3.75 MG
     Route: 048
     Dates: start: 20220427, end: 20220511
  8. SAMSCA [Concomitant]
     Active Substance: TOLVAPTAN
     Dosage: 7.5 MG
     Route: 048
     Dates: start: 20220512

REACTIONS (3)
  - Hyperkalaemia [Recovering/Resolving]
  - Hypokalaemia [Recovering/Resolving]
  - Blood sodium decreased [Unknown]

NARRATIVE: CASE EVENT DATE: 20220426
